FAERS Safety Report 12368577 (Version 1)
Quarter: 2016Q2

REPORT INFORMATION
  Report Type: Spontaneous
  Country: US (occurrence: US)
  Receive Date: 20160513
  Receipt Date: 20160513
  Transmission Date: 20160815
  Serious: No
  Sender: FDA-Public Use
  Company Number: US-JNJFOC-20160410728

PATIENT
  Sex: Female

DRUGS (2)
  1. WOMENS ROGAINE [Suspect]
     Active Substance: MINOXIDIL
     Route: 061
  2. WOMENS ROGAINE [Suspect]
     Active Substance: MINOXIDIL
     Indication: TRICHORRHEXIS
     Dosage: ABOUT A CAPFUL ONE TIME
     Route: 061
     Dates: start: 20160410

REACTIONS (4)
  - Off label use [Unknown]
  - Drug administered at inappropriate site [Unknown]
  - Hair texture abnormal [Recovered/Resolved]
  - Product use issue [Unknown]
